FAERS Safety Report 18169020 (Version 7)
Quarter: 2022Q2

REPORT INFORMATION
  Report Type: Spontaneous
  Country: US (occurrence: US)
  Receive Date: 20200819
  Receipt Date: 20220509
  Transmission Date: 20220721
  Serious: No
  Sender: FDA-Public Use
  Company Number: US-PFIZER INC-2020320071

PATIENT
  Age: 61 Year
  Sex: Female

DRUGS (2)
  1. XELJANZ XR [Suspect]
     Active Substance: TOFACITINIB CITRATE
     Indication: Rheumatoid arthritis
     Dosage: 11 MG, DAILY
     Route: 048
     Dates: start: 202001, end: 202109
  2. XELJANZ XR [Suspect]
     Active Substance: TOFACITINIB CITRATE
     Dosage: 11 MG
     Dates: start: 20200721

REACTIONS (17)
  - Product dose omission issue [Unknown]
  - Arthralgia [Unknown]
  - Nausea [Unknown]
  - Rash [Unknown]
  - Pain in extremity [Unknown]
  - Blood cholesterol increased [Unknown]
  - Arthropathy [Unknown]
  - Muscular weakness [Unknown]
  - Hand deformity [Unknown]
  - Muscle spasms [Unknown]
  - Myalgia [Unknown]
  - Memory impairment [Unknown]
  - Osteoarthritis [Unknown]
  - Weight increased [Unknown]
  - Arthralgia [Not Recovered/Not Resolved]
  - Loss of personal independence in daily activities [Unknown]
  - Pain [Not Recovered/Not Resolved]

NARRATIVE: CASE EVENT DATE: 20200101
